FAERS Safety Report 5317755-4 (Version None)
Quarter: 2007Q2

REPORT INFORMATION
  Report Type: 
  Country: None (occurrence: None)
  Receive Date: 20070502
  Receipt Date: 20070502
  Transmission Date: 20071010
  Serious: Yes (Hospitalization)
  Sender: FDA-Public Use
  Company Number: None

PATIENT
  Sex: Male

DRUGS (8)
  1. REVLIMID [Suspect]
     Indication: MULTIPLE MYELOMA
     Dosage: 25MG DAILY 21D/28D PO
     Route: 048
  2. COUMADIN [Concomitant]
  3. LORAZEPAM [Concomitant]
  4. ALLOPURINOL [Concomitant]
  5. PREDNISONE TAB [Concomitant]
  6. GLYCOLAX [Concomitant]
  7. MORPHINE SULFATE [Concomitant]
  8. FENTANYL TRANSDERMAL SYSTEM [Concomitant]

REACTIONS (1)
  - PNEUMONIA [None]
